FAERS Safety Report 6989171-0 (Version None)
Quarter: 2010Q3

REPORT INFORMATION
  Report Type: 
  Country: None (occurrence: None)
  Receive Date: 20100916
  Receipt Date: 20090824
  Transmission Date: 20110219
  Serious: Yes (Hospitalization)
  Sender: FDA-Public Use
  Company Number: GB-PFIZER INC-2009258468

PATIENT
  Age: 66 Year
  Sex: Female

DRUGS (4)
  1. LYRICA [Suspect]
     Indication: NIGHT SWEATS
     Dosage: 50 MG, 2X/DAY
     Route: 048
     Dates: start: 20090608, end: 20090713
  2. BENDROFLUMETHIAZIDE [Concomitant]
     Indication: HYPERTENSION
     Dosage: 2.5 MG, 1X/DAY
     Dates: start: 20070301, end: 20090727
  3. IRBESARTAN [Concomitant]
     Indication: HYPERTENSION
     Dosage: 225 MG, 1X/DAY
     Dates: start: 20080501, end: 20090727
  4. OMEPRAZOLE [Concomitant]
     Indication: HERNIA
     Dosage: 40 MG, 1X/DAY
     Dates: start: 20081201

REACTIONS (4)
  - ABDOMINAL PAIN UPPER [None]
  - LIVER FUNCTION TEST ABNORMAL [None]
  - MALAISE [None]
  - WEIGHT DECREASED [None]
